FAERS Safety Report 23933770 (Version 1)
Quarter: 2024Q2

REPORT INFORMATION
  Report Type: Spontaneous
  Country: NL (occurrence: NL)
  Receive Date: 20240603
  Receipt Date: 20240603
  Transmission Date: 20240716
  Serious: Yes (Hospitalization)
  Sender: FDA-Public Use
  Company Number: NL-STRIDES ARCOLAB LIMITED-2024SP006374

PATIENT
  Age: 15 Year
  Sex: Female
  Weight: 34.5 kg

DRUGS (14)
  1. TRAMADOL [Interacting]
     Active Substance: TRAMADOL\TRAMADOL HYDROCHLORIDE
     Indication: Pain
     Dosage: 35 MILLIGRAM, QID
     Route: 048
     Dates: start: 2022, end: 2022
  2. BACLOFEN [Interacting]
     Active Substance: BACLOFEN
     Indication: Cerebral palsy
     Dosage: 507 MICROGRAM, QD,PUMP
  3. BACLOFEN [Interacting]
     Active Substance: BACLOFEN
     Dosage: 30 MICROGRAM, QD PUMP
  4. BACLOFEN [Interacting]
     Active Substance: BACLOFEN
     Dosage: 105 MICROGRAM, QD, PUMP
  5. BACLOFEN [Interacting]
     Active Substance: BACLOFEN
     Dosage: 80 MICROGRAM, QD, PUMP
  6. BACLOFEN [Interacting]
     Active Substance: BACLOFEN
     Dosage: 105 MICROGRAM, QD, PUMP
  7. MORPHINE [Interacting]
     Active Substance: MORPHINE
     Indication: Pain
     Dosage: 4 MILLIGRAM
     Route: 042
     Dates: start: 2022, end: 2022
  8. MORPHINE [Interacting]
     Active Substance: MORPHINE
     Dosage: 5 MCG/KG, EVERY HOUR (INFUSION)
     Route: 042
     Dates: start: 2022, end: 2022
  9. VALPROIC ACID [Concomitant]
     Active Substance: VALPROIC ACID
     Indication: Epilepsy
     Dosage: 500 MILLIGRAM, BID
     Route: 065
  10. PERAMPANEL [Concomitant]
     Active Substance: PERAMPANEL
     Indication: Epilepsy
     Dosage: 4 MILLIGRAM, QD
     Route: 065
  11. APREPITANT [Concomitant]
     Active Substance: APREPITANT
     Indication: Product used for unknown indication
     Dosage: 80 MILLIGRAM, QD
     Route: 065
  12. OMEPRAZOLE [Concomitant]
     Active Substance: DONEPEZIL HYDROCHLORIDE\OMEPRAZOLE\OMEPRAZOLE MAGNESIUM
     Indication: Product used for unknown indication
     Dosage: 20 MILLIGRAM, BID
     Route: 065
  13. GLYCOPYRRONIUM [Concomitant]
     Active Substance: GLYCOPYRRONIUM
     Indication: Product used for unknown indication
     Dosage: 1280 MICROGRAM, BID
     Route: 065
  14. ACETAMINOPHEN [Concomitant]
     Active Substance: ACETAMINOPHEN
     Indication: Pain
     Dosage: UNK
     Route: 042

REACTIONS (3)
  - Drug interaction [Unknown]
  - Respiratory depression [Recovered/Resolved]
  - Overdose [Unknown]

NARRATIVE: CASE EVENT DATE: 20220101
